FAERS Safety Report 7401946-2 (Version None)
Quarter: 2011Q2

REPORT INFORMATION
  Report Type: 
  Country: None (occurrence: None)
  Receive Date: 20110408
  Receipt Date: 20110404
  Transmission Date: 20111010
  Serious: Yes (Other)
  Sender: FDA-Public Use
  Company Number: NL-PFIZER INC-2011074641

PATIENT

DRUGS (1)
  1. LIPITOR [Suspect]
     Dosage: 20 MG, UNK

REACTIONS (5)
  - OROPHARYNGEAL BLISTERING [None]
  - EYE PAIN [None]
  - OEDEMA MOUTH [None]
  - LIP SWELLING [None]
  - ORAL PAIN [None]
